FAERS Safety Report 14556773 (Version 1)
Quarter: 2018Q1

REPORT INFORMATION
  Report Type: Spontaneous
  Country: US (occurrence: US)
  Receive Date: 20180221
  Receipt Date: 20180221
  Transmission Date: 20180509
  Serious: Yes (Other)
  Sender: FDA-Public Use
  Company Number: US-TEVA-2018-US-860901

PATIENT
  Sex: Female

DRUGS (1)
  1. COPAXONE [Suspect]
     Active Substance: GLATIRAMER ACETATE
     Route: 065

REACTIONS (5)
  - Hypersensitivity [Unknown]
  - Pharyngeal oedema [Unknown]
  - Injection site mass [Unknown]
  - Urticaria [Unknown]
  - Injection site pruritus [Unknown]
